FAERS Safety Report 9226681 (Version 1)
Quarter: 2013Q2

REPORT INFORMATION
  Report Type: Spontaneous
  Country: US (occurrence: US)
  Receive Date: 20130412
  Receipt Date: 20130412
  Transmission Date: 20140414
  Serious: No
  Sender: FDA-Public Use
  Company Number: US-PFIZER INC-2013115680

PATIENT
  Age: 43 Year
  Sex: Male
  Weight: 117.91 kg

DRUGS (4)
  1. ZOLOFT [Suspect]
     Indication: ANXIETY
     Dosage: 50 MG, 1X/DAY
     Route: 048
     Dates: start: 201007, end: 201211
  2. ZOLOFT [Suspect]
     Indication: STRESS
     Dosage: 100 MG, 1X/DAY
     Route: 048
     Dates: start: 201211, end: 201211
  3. ZOLOFT [Suspect]
     Indication: PANIC ATTACK
     Dosage: UNK, 1X/DAY
     Route: 048
     Dates: start: 201211, end: 20130405
  4. ZOLOFT [Suspect]
     Indication: DEPRESSION

REACTIONS (3)
  - Blood cholesterol increased [Unknown]
  - Drug ineffective [Unknown]
  - Insomnia [Not Recovered/Not Resolved]
